FAERS Safety Report 4831018-2 (Version None)
Quarter: 2005Q4

REPORT INFORMATION
  Report Type: 
  Country: None (occurrence: None)
  Receive Date: 20051114
  Receipt Date: 20051104
  Transmission Date: 20060501
  Serious: Yes (Other)
  Sender: FDA-Public Use
  Company Number: EWC051046284

PATIENT
  Age: 57 Year
  Sex: Male
  Weight: 66 kg

DRUGS (4)
  1. GEMCITABINE HYDROCHLORIDE-IV (GEMCITABINE) [Suspect]
     Indication: NON-SMALL CELL LUNG CANCER
     Dosage: 1750 MG/12; OTHER
     Route: 050
     Dates: start: 20050125, end: 20050527
  2. CISPLATIN [Suspect]
     Indication: NON-SMALL CELL LUNG CANCER
     Dosage: 120 MG/6; OTHER
     Route: 050
     Dates: start: 20050125, end: 20050510
  3. RAMOSETRON [Concomitant]
  4. DEXAMETHASONE [Concomitant]

REACTIONS (1)
  - PARAESTHESIA [None]
